FAERS Safety Report 6670344-1 (Version None)
Quarter: 2010Q2

REPORT INFORMATION
  Report Type: 
  Country: None (occurrence: None)
  Receive Date: 20100405
  Receipt Date: 20100329
  Transmission Date: 20101027
  Serious: Yes (Other)
  Sender: FDA-Public Use
  Company Number: 2010SP019398

PATIENT
  Age: 60 Year
  Sex: Male

DRUGS (2)
  1. REMERON [Suspect]
     Indication: ANXIETY
     Dosage: 45 MG;QD;PO
     Route: 048
     Dates: start: 20100101
  2. REMERON [Suspect]
     Indication: DEPRESSION
     Dosage: 45 MG;QD;PO
     Route: 048
     Dates: start: 20100101

REACTIONS (1)
  - ELECTROENCEPHALOGRAM ABNORMAL [None]
